FAERS Safety Report 8426504-2 (Version None)
Quarter: 2012Q2

REPORT INFORMATION
  Report Type: 
  Country: None (occurrence: None)
  Receive Date: 20120611
  Receipt Date: 20120531
  Transmission Date: 20120825
  Serious: Yes (Hospitalization)
  Sender: FDA-Public Use
  Company Number: US-VERTEX PHARMACEUTICALS INC.-AE-2012-008071

PATIENT
  Sex: Female

DRUGS (3)
  1. INCIVEK [Suspect]
     Indication: HEPATITIS C
     Route: 048
     Dates: start: 20120202, end: 20120429
  2. RIBAVIRIN [Concomitant]
     Indication: HEPATITIS C
     Dates: start: 20120202, end: 20120429
  3. PEGASYS [Concomitant]
     Indication: HEPATITIS C
     Dates: start: 20120202, end: 20120429

REACTIONS (8)
  - AFFECT LABILITY [None]
  - DELUSION [None]
  - DECREASED APPETITE [None]
  - NAUSEA [None]
  - INSOMNIA [None]
  - GAIT DISTURBANCE [None]
  - FATIGUE [None]
  - PYREXIA [None]
